FAERS Safety Report 6268255-9 (Version None)
Quarter: 2009Q3

REPORT INFORMATION
  Report Type: 
  Country: None (occurrence: None)
  Receive Date: 20090715
  Receipt Date: 20090713
  Transmission Date: 20100115
  Serious: Yes (Other)
  Sender: FDA-Public Use
  Company Number: US-JNJFOC-20090609355

PATIENT
  Sex: Female
  Weight: 51.26 kg

DRUGS (8)
  1. LEVAQUIN [Suspect]
     Route: 048
  2. LEVAQUIN [Suspect]
     Indication: URINARY TRACT INFECTION
     Route: 048
  3. PHENAZOPYRIDINE HCL TAB [Concomitant]
     Indication: DRUG USE FOR UNKNOWN INDICATION
     Dosage: FOR 2 DAYS
     Route: 065
  4. TEGRETOL [Concomitant]
     Route: 065
  5. ACIPHEX [Concomitant]
     Route: 065
  6. LIPITOR [Concomitant]
     Route: 065
  7. FOSAMAX [Concomitant]
     Route: 065
  8. ASPIRIN [Concomitant]
     Route: 065

REACTIONS (1)
  - INCORRECT DOSE ADMINISTERED [None]
